FAERS Safety Report 6395289-6 (Version None)
Quarter: 2009Q4

REPORT INFORMATION
  Report Type: 
  Country: None (occurrence: None)
  Receive Date: 20091009
  Receipt Date: 20091007
  Transmission Date: 20100525
  Serious: Yes (Hospitalization)
  Sender: FDA-Public Use
  Company Number: A0810763A

PATIENT
  Age: 86 Year
  Sex: Male

DRUGS (8)
  1. ADVAIR DISKUS 100/50 [Suspect]
     Indication: CHRONIC OBSTRUCTIVE PULMONARY DISEASE
     Route: 055
     Dates: start: 20070101
  2. COUMADIN [Concomitant]
  3. FUROSEMIDE [Concomitant]
  4. SPIRONOLACTONE [Concomitant]
  5. IRON [Concomitant]
  6. OXYCODONE [Concomitant]
  7. OMEPRAZOLE [Concomitant]
  8. WARFARIN SODIUM [Concomitant]

REACTIONS (4)
  - ABNORMAL DREAMS [None]
  - FALL [None]
  - RIB FRACTURE [None]
  - UPPER LIMB FRACTURE [None]
